FAERS Safety Report 4679799-5 (Version None)
Quarter: 2005Q2

REPORT INFORMATION
  Report Type: 
  Country: None (occurrence: None)
  Receive Date: 20050602
  Receipt Date: 20050520
  Transmission Date: 20051028
  Serious: Yes (Other)
  Sender: FDA-Public Use
  Company Number: JP-MERCK-0505USA03296

PATIENT
  Age: 63 Year
  Sex: Male

DRUGS (6)
  1. PEPCID [Concomitant]
     Route: 048
     Dates: end: 20030404
  2. COZAAR [Suspect]
     Indication: HYPERTENSION
     Route: 048
     Dates: end: 20030321
  3. PIPERACILLIN SODIUM [Suspect]
     Route: 065
     Dates: start: 20030303, end: 20030314
  4. VALSARTAN [Concomitant]
     Route: 065
     Dates: start: 20030321, end: 20030420
  5. LOXOPROFEN SODIUM [Concomitant]
     Route: 048
     Dates: end: 20030404
  6. AMLODIPINE BESYLATE [Concomitant]
     Route: 065
     Dates: start: 20030420

REACTIONS (2)
  - BLOOD LACTIC ACID INCREASED [None]
  - COOMBS NEGATIVE HAEMOLYTIC ANAEMIA [None]
